FAERS Safety Report 14759161 (Version 2)
Quarter: 2018Q2

REPORT INFORMATION
  Report Type: Report from Study
  Country: IT (occurrence: IT)
  Receive Date: 20180413
  Receipt Date: 20180622
  Transmission Date: 20180711
  Serious: Yes (Hospitalization)
  Sender: FDA-Public Use
  Company Number: IT-MYLANLABS-2018M1022996

PATIENT
  Age: 78 Year
  Sex: Male
  Weight: 70 kg

DRUGS (21)
  1. PREDNISONE. [Suspect]
     Active Substance: PREDNISONE
     Dosage: 10 MG, QD
     Route: 048
     Dates: start: 20151020, end: 20171107
  2. MATRIFEN [Suspect]
     Active Substance: FENTANYL
     Indication: ARTHRALGIA
     Dosage: 50 MCG/HR EVERY THREE DAYS, Q3D
     Route: 062
     Dates: start: 20170726
  3. OXYCODONE HYDROCHLORIDE. [Suspect]
     Active Substance: OXYCODONE HYDROCHLORIDE
     Indication: PAIN IN EXTREMITY
     Dosage: 20 MG, DAILY
     Route: 048
     Dates: start: 20170803
  4. OXYCONTIN [Suspect]
     Active Substance: OXYCODONE HYDROCHLORIDE
     Indication: PAIN IN EXTREMITY
     Dosage: 20 MG, QD
     Route: 048
     Dates: start: 20170803
  5. ENANTONE LP [Concomitant]
     Active Substance: LEUPROLIDE ACETATE
     Indication: PROSTATE CANCER
     Dosage: DOSAGE FORM: UNSPECIFIED
     Route: 065
  6. DELTACORTENE [Concomitant]
     Active Substance: PREDNISONE
     Indication: ARTHRALGIA
  7. PREDNISONE. [Suspect]
     Active Substance: PREDNISONE
     Indication: PROSTATE CANCER
     Dosage: DOSAGE FORM: UNSPECIFIED
     Route: 065
  8. ABIRATERONE [Suspect]
     Active Substance: ABIRATERONE
     Indication: PROSTATE CANCER
     Dosage: 1000 MG, DAILY
     Route: 048
     Dates: start: 20151020, end: 20171107
  9. ORAMORPH [Concomitant]
     Active Substance: MORPHINE SULFATE
     Indication: ARTHRALGIA
  10. PREDNISONE. [Suspect]
     Active Substance: PREDNISONE
     Indication: PROSTATE CANCER
     Dosage: 10 MG, QD
     Route: 048
     Dates: start: 20151020, end: 20171107
  11. LYRICA [Concomitant]
     Active Substance: PREGABALIN
     Indication: PAIN IN EXTREMITY
     Dosage: DOSAGE FORM: UNKNOWN
     Route: 065
  12. ORAMORPH [Concomitant]
     Active Substance: MORPHINE SULFATE
     Indication: PAIN IN EXTREMITY
     Dosage: DOSAGE FORM: UNSPECIFIED
     Route: 065
  13. SOLDESAM [Concomitant]
     Active Substance: DEXAMETHASONE
     Indication: ARTHRALGIA
  14. DELTACORTENE [Concomitant]
     Active Substance: PREDNISONE
     Indication: PROSTATE CANCER
     Dosage: DOSAGE FORM: UNSPECIFIED
     Route: 065
  15. VELLOFENT [Concomitant]
     Indication: PAIN IN EXTREMITY
     Dosage: DOSAGE FORM: UNSPECIFIED
  16. ENZALUTAMIDE [Suspect]
     Active Substance: ENZALUTAMIDE
     Indication: PROSTATE CANCER
     Dosage: 160 MG, QD
     Route: 048
     Dates: start: 20140603, end: 20171107
  17. OXYCONTIN [Suspect]
     Active Substance: OXYCODONE HYDROCHLORIDE
     Indication: ARTHRALGIA
  18. SOLDESAM [Concomitant]
     Active Substance: DEXAMETHASONE
     Indication: PAIN IN EXTREMITY
     Dosage: DOSAGE FORM: UNSPECIFIED
     Route: 065
  19. MATRIFEN [Suspect]
     Active Substance: FENTANYL
     Indication: PAIN IN EXTREMITY
     Dosage: UNK UNK, Q3D
     Route: 062
     Dates: start: 20170726
  20. FENTANYL CITRATE. [Concomitant]
     Active Substance: FENTANYL CITRATE
     Indication: PRODUCT USED FOR UNKNOWN INDICATION
     Dosage: 50 MCG/HR,UNK
     Route: 065
  21. DELTACORTENE [Concomitant]
     Active Substance: PREDNISONE
     Indication: PAIN IN EXTREMITY

REACTIONS (2)
  - Pain in extremity [Recovered/Resolved]
  - Decreased appetite [Recovered/Resolved]

NARRATIVE: CASE EVENT DATE: 20171007
